FAERS Safety Report 14009532 (Version 1)
Quarter: 2017Q3

REPORT INFORMATION
  Report Type: Report from Study
  Country: KR (occurrence: KR)
  Receive Date: 20170925
  Receipt Date: 20170925
  Transmission Date: 20171128
  Serious: Yes (Death, Life-Threatening)
  Sender: FDA-Public Use
  Company Number: KR-SYNEX-201508000258

PATIENT
  Age: 2 Day
  Sex: Female
  Weight: 4 kg

DRUGS (5)
  1. NITRIC OXIDE. [Suspect]
     Active Substance: NITRIC OXIDE
     Indication: PULMONARY HYPERTENSION
     Dosage: 80 PPM, CONTINUOUS
     Dates: start: 20150801, end: 20150805
  2. NITRIC OXIDE. [Suspect]
     Active Substance: NITRIC OXIDE
     Indication: RESPIRATORY FAILURE
  3. ILOPROST. [Concomitant]
     Active Substance: ILOPROST
  4. SILDENAFIL. [Concomitant]
     Active Substance: SILDENAFIL
     Route: 048
  5. OXYGEN. [Concomitant]
     Active Substance: OXYGEN
     Dosage: UNK

REACTIONS (4)
  - Cardiac arrest neonatal [Recovered/Resolved]
  - Persistent foetal circulation [Fatal]
  - C-reactive protein increased [Not Recovered/Not Resolved]
  - Cardiac arrest neonatal [Fatal]

NARRATIVE: CASE EVENT DATE: 20150802
